FAERS Safety Report 13408229 (Version 1)
Quarter: 2017Q2

REPORT INFORMATION
  Report Type: Spontaneous
  Country: US (occurrence: US)
  Receive Date: 20170405
  Receipt Date: 20170405
  Transmission Date: 20170830
  Serious: Yes (Death)
  Sender: FDA-Public Use
  Company Number: None

PATIENT
  Age: 36 Year
  Sex: Female

DRUGS (2)
  1. GAMMAGARD LIQUID [Suspect]
     Active Substance: HUMAN IMMUNOGLOBULIN G
     Indication: AUTOIMMUNE DISORDER
     Dosage: 25GM EVERY 4 WEEKS PERIPHERAL
     Dates: start: 20150327
  2. EPIPEN [Suspect]
     Active Substance: EPINEPHRINE
     Dates: start: 20150330

REACTIONS (1)
  - Death [None]
